FAERS Safety Report 9092853 (Version 1)
Quarter: 2013Q1

REPORT INFORMATION
  Report Type: Report from Study
  Country: US (occurrence: US)
  Receive Date: 20130131
  Receipt Date: 20130131
  Transmission Date: 20140127
  Serious: Yes (Hospitalization, Other)
  Sender: FDA-Public Use
  Company Number: US-ABBOTT-12P-163-1004390-00

PATIENT
  Age: 55 Year
  Sex: Female

DRUGS (5)
  1. HUMIRA [Suspect]
     Indication: CROHN^S DISEASE
     Dates: start: 201004
  2. UNKNOWN MEDICATION [Concomitant]
     Indication: DEPRESSION
  3. UNKNOWN MEDICATION [Concomitant]
     Indication: ANXIETY
  4. UNKNOWN MEDICATION [Concomitant]
     Indication: PAIN
  5. SLEEPING PILLS [Concomitant]
     Indication: SLEEP DISORDER

REACTIONS (9)
  - Crohn^s disease [Not Recovered/Not Resolved]
  - Incision site pain [Unknown]
  - Colitis [Unknown]
  - Fibromyalgia [Unknown]
  - Gastric disorder [Unknown]
  - Musculoskeletal stiffness [Unknown]
  - Joint range of motion decreased [Unknown]
  - Pain [Unknown]
  - Ear infection [Unknown]
